FAERS Safety Report 10095623 (Version 1)
Quarter: 2014Q2

REPORT INFORMATION
  Report Type: Spontaneous
  Country: US (occurrence: None)
  Receive Date: 20140421
  Receipt Date: 20140421
  Transmission Date: 20141212
  Serious: No
  Sender: FDA-Public Use
  Company Number: None

PATIENT
  Age: 55 Year
  Sex: Female
  Weight: 175.09 kg

DRUGS (7)
  1. AVELOX [Suspect]
     Indication: CELLULITIS
     Route: 042
     Dates: start: 20140417, end: 20140417
  2. HOME MEDS [Concomitant]
  3. GLUCOPHAGE [Concomitant]
  4. FUROSDEMIDE [Concomitant]
  5. LEVOTHHYROXIN [Concomitant]
  6. SPIRONOLACTONE [Concomitant]
  7. GEN BACTRIM [Concomitant]

REACTIONS (2)
  - Burning sensation [None]
  - Infusion site pain [None]
